FAERS Safety Report 7713878-0 (Version None)
Quarter: 2011Q3

REPORT INFORMATION
  Report Type: 
  Country: None (occurrence: None)
  Receive Date: 20110826
  Receipt Date: 20110825
  Transmission Date: 20111222
  Serious: Yes (Hospitalization, Other)
  Sender: FDA-Public Use
  Company Number: US-AMGEN-USASP2011036601

PATIENT
  Age: 68 Year
  Sex: Male
  Weight: 130 kg

DRUGS (1)
  1. NPLATE [Suspect]
     Indication: IDIOPATHIC THROMBOCYTOPENIC PURPURA
     Dosage: 3 A?G/KG, QWK
     Route: 058
     Dates: start: 20090929, end: 20110302

REACTIONS (4)
  - WOUND DEHISCENCE [None]
  - WOUND INFECTION STAPHYLOCOCCAL [None]
  - TIBIA FRACTURE [None]
  - THROMBOCYTOPENIA [None]
